FAERS Safety Report 23129862 (Version 1)
Quarter: 2023Q4

REPORT INFORMATION
  Report Type: Spontaneous
  Country: CN (occurrence: CN)
  Receive Date: 20231031
  Receipt Date: 20231031
  Transmission Date: 20240110
  Serious: Yes (Hospitalization)
  Sender: FDA-Public Use
  Company Number: CN-Merck Healthcare KGaA-2023483446

PATIENT
  Age: 69 Year
  Sex: Male
  Weight: 61 kg

DRUGS (2)
  1. ERBITUX [Suspect]
     Active Substance: CETUXIMAB
     Indication: Colon cancer
     Dosage: 400 MG, UNKNOWN
     Route: 041
     Dates: start: 20230831, end: 20230831
  2. IRINOTECAN HYDROCHLORIDE [Suspect]
     Active Substance: IRINOTECAN HYDROCHLORIDE
     Indication: Colon cancer
     Dosage: 300 MG, OTHER (ONCE IN THREE WEEKS)
     Route: 041
     Dates: start: 20230831, end: 20230831

REACTIONS (1)
  - Myelosuppression [Unknown]

NARRATIVE: CASE EVENT DATE: 20230920
